FAERS Safety Report 6286930-7 (Version None)
Quarter: 2009Q3

REPORT INFORMATION
  Report Type: 
  Country: None (occurrence: None)
  Receive Date: 20090728
  Receipt Date: 20090714
  Transmission Date: 20100115
  Serious: Yes (Death, Life-Threatening, Other)
  Sender: FDA-Public Use
  Company Number: US-ROCHE-645992

PATIENT
  Age: 64 Year
  Sex: Female

DRUGS (8)
  1. MYCOPHENOLATE MOFETIL [Suspect]
     Route: 065
     Dates: start: 20070801
  2. SULFAMETHOXAZOLE AND TRIMETHOPRIM [Suspect]
     Indication: ANTI-INFECTIVE THERAPY
     Route: 065
  3. GANCICLOVIR [Suspect]
     Indication: ANTI-INFECTIVE THERAPY
     Route: 065
  4. PROGRAF [Suspect]
     Route: 065
     Dates: start: 20070801
  5. LINEZOLID [Suspect]
     Indication: ANTI-INFECTIVE THERAPY
     Route: 065
  6. CEFEPIME [Suspect]
     Indication: ANTI-INFECTIVE THERAPY
     Route: 065
  7. METRONIDAZOLE [Suspect]
     Indication: ANTI-INFECTIVE THERAPY
     Route: 065
  8. PIPERACILLIN SODIUM AND TAZOBACTAM SODIUM [Concomitant]
     Dosage: DRUG REPORTED AS PIPERACILLIN W/TAZOBACTAM

REACTIONS (12)
  - CLOSTRIDIUM DIFFICILE COLITIS [None]
  - CYTOMEGALOVIRUS VIRAEMIA [None]
  - DEATH [None]
  - ENTEROCOCCAL INFECTION [None]
  - GASTROINTESTINAL HAEMORRHAGE [None]
  - KLEBSIELLA BACTERAEMIA [None]
  - KLEBSIELLA INFECTION [None]
  - PULMONARY EMBOLISM [None]
  - RENAL FAILURE ACUTE [None]
  - RESPIRATORY FAILURE [None]
  - SEPTIC SHOCK [None]
  - TRANSPLANT REJECTION [None]
